FAERS Safety Report 9152786 (Version 1)
Quarter: 2013Q1

REPORT INFORMATION
  Report Type: Spontaneous
  Country: HU (occurrence: HU)
  Receive Date: 20130110
  Receipt Date: 20130110
  Transmission Date: 20140127
  Serious: Yes (Other)
  Sender: FDA-Public Use
  Company Number: HU-PFIZER INC-2012251654

PATIENT
  Age: 68 Year
  Sex: Female
  Weight: 83 kg

DRUGS (3)
  1. OBRADON [Suspect]
     Indication: BLOOD CHOLESTEROL INCREASED
     Dosage: 40 MG, ONCE DAILY
     Dates: start: 201202, end: 201209
  2. MERCKFORMIN [Concomitant]
     Dosage: UNK
  3. PORTIRON [Concomitant]
     Dosage: UNK

REACTIONS (6)
  - Arthropathy [Unknown]
  - Thyroid neoplasm [Not Recovered/Not Resolved]
  - Choking sensation [Not Recovered/Not Resolved]
  - Local swelling [Unknown]
  - Local swelling [Unknown]
  - Laboratory test abnormal [Unknown]
